FAERS Safety Report 17003270 (Version 1)
Quarter: 2019Q4

REPORT INFORMATION
  Report Type: Spontaneous
  Country: US (occurrence: US)
  Receive Date: 20191107
  Receipt Date: 20191107
  Transmission Date: 20200122
  Serious: No
  Sender: FDA-Public Use
  Company Number: US-ALLERGAN-1913480US

PATIENT
  Age: 85 Year
  Sex: Female

DRUGS (1)
  1. ALPHAGAN P [Suspect]
     Active Substance: BRIMONIDINE TARTRATE
     Indication: RETINAL OEDEMA
     Dosage: 1 GTT, BID (MORNING AND NIGHT)
     Route: 047
     Dates: start: 20190321, end: 20190321

REACTIONS (3)
  - Off label use [Unknown]
  - Photosensitivity reaction [Recovered/Resolved]
  - Eye pain [Recovered/Resolved]

NARRATIVE: CASE EVENT DATE: 20190321
